FAERS Safety Report 6423817-0 (Version None)
Quarter: 2009Q4

REPORT INFORMATION
  Report Type: 
  Country: None (occurrence: None)
  Receive Date: 20091030
  Receipt Date: 20091030
  Transmission Date: 20100525
  Serious: Yes (Hospitalization)
  Sender: FDA-Public Use
  Company Number: None

PATIENT
  Age: 70 Year

DRUGS (1)
  1. TERAZOSIN HCL [Suspect]
     Indication: UPPER RESPIRATORY TRACT INFECTION
     Dosage: 2 MG EVERY DAY PO
     Route: 048
     Dates: start: 20090914, end: 20090918

REACTIONS (10)
  - ATELECTASIS [None]
  - BLINDNESS [None]
  - DEMYELINATION [None]
  - DIZZINESS [None]
  - DYSPNOEA [None]
  - FALL [None]
  - GAIT DISTURBANCE [None]
  - HIATUS HERNIA [None]
  - ORTHOSTATIC HYPOTENSION [None]
  - PERIPHERAL SENSORY NEUROPATHY [None]
